FAERS Safety Report 14577916 (Version 2)
Quarter: 2018Q2

REPORT INFORMATION
  Report Type: Spontaneous
  Country: US (occurrence: US)
  Receive Date: 20180227
  Receipt Date: 20180517
  Transmission Date: 20180711
  Serious: Yes (Other)
  Sender: FDA-Public Use
  Company Number: US-IMPAX LABORATORIES, INC-2018-IPXL-00597

PATIENT
  Sex: Male
  Weight: 119 kg

DRUGS (2)
  1. RYTARY [Suspect]
     Active Substance: CARBIDOPA\LEVODOPA
     Dosage: 61.25/245 MG, 2 CAPSULES, 5/DAY
     Route: 048
     Dates: start: 2018
  2. RYTARY [Suspect]
     Active Substance: CARBIDOPA\LEVODOPA
     Indication: PARKINSON^S DISEASE
     Dosage: 36.25/145MG TWO CAPSULES, FIVE TIMES PER DAY
     Route: 048
     Dates: start: 20171130

REACTIONS (2)
  - Arthralgia [Recovering/Resolving]
  - Hip arthroplasty [Unknown]

NARRATIVE: CASE EVENT DATE: 2018
